FAERS Safety Report 26187327 (Version 1)
Quarter: 2025Q4

REPORT INFORMATION
  Report Type: Spontaneous
  Country: EU (occurrence: EU)
  Receive Date: 20251222
  Receipt Date: 20251222
  Transmission Date: 20260118
  Serious: Yes (Life-Threatening, Hospitalization)
  Sender: AMGEN
  Company Number: EU-AMGEN-DEUSP2025250523

PATIENT
  Sex: Male

DRUGS (3)
  1. IMDELLTRA [Suspect]
     Active Substance: TARLATAMAB-DLLE
     Indication: Small cell lung cancer
     Dosage: 1 MILLIGRAM, CYCLE 1 DAY 1
     Route: 040
  2. SALINE [Interacting]
     Active Substance: SODIUM CHLORIDE
     Dosage: 1 LITER
     Route: 065
  3. DEXAMETHASONE [Concomitant]
     Active Substance: DEXAMETHASONE

REACTIONS (3)
  - General physical health deterioration [Unknown]
  - Cytokine release syndrome [Unknown]
  - Off label use [Unknown]
